FAERS Safety Report 13297506 (Version 1)
Quarter: 2017Q1

REPORT INFORMATION
  Report Type: Spontaneous
  Country: US (occurrence: US)
  Receive Date: 20170305
  Receipt Date: 20170305
  Transmission Date: 20170428
  Serious: Yes (Hospitalization, Disabling)
  Sender: FDA-Public Use
  Company Number: None

PATIENT
  Age: 13 Year
  Sex: Male
  Weight: 45 kg

DRUGS (2)
  1. MULTIVITAMIN [Concomitant]
     Active Substance: VITAMINS
  2. MIRALAX [Suspect]
     Active Substance: POLYETHYLENE GLYCOL 3350
     Indication: CONSTIPATION
     Dosage: ?          OTHER FREQUENCY:CANT REMEMBER;?
     Route: 048
     Dates: end: 20140215

REACTIONS (4)
  - Urethral stenosis [None]
  - Nervous system disorder [None]
  - Tic [None]
  - Anxiety [None]

NARRATIVE: CASE EVENT DATE: 20140212
